FAERS Safety Report 18866467 (Version 1)
Quarter: 2021Q1

REPORT INFORMATION
  Report Type: Report from Study
  Country: PA (occurrence: PA)
  Receive Date: 20210209
  Receipt Date: 20210209
  Transmission Date: 20210420
  Serious: Yes (Other)
  Sender: FDA-Public Use
  Company Number: NVSC2021PA023991

PATIENT
  Age: 78 Year
  Sex: Female

DRUGS (2)
  1. VYMADA [Suspect]
     Active Substance: SACUBITRIL\VALSARTAN
     Indication: INFARCTION
     Dosage: 50 MG, STOPPED APPROXIMATELY 1 WEEK AGO
     Route: 065
     Dates: start: 20200515
  2. VYMADA [Suspect]
     Active Substance: SACUBITRIL\VALSARTAN
     Dosage: 100 MG, STARTED APPROXIMATELY 1 WEEK AGO
     Route: 065

REACTIONS (2)
  - Cardiac failure [Recovering/Resolving]
  - Product use in unapproved indication [Unknown]
